FAERS Safety Report 16445375 (Version 1)
Quarter: 2019Q2

REPORT INFORMATION
  Report Type: Spontaneous
  Country: DK (occurrence: DK)
  Receive Date: 20190618
  Receipt Date: 20190618
  Transmission Date: 20190711
  Serious: Yes (Life-Threatening, Hospitalization)
  Sender: FDA-Public Use
  Company Number: PHHY2019DK137758

PATIENT
  Age: 42 Year
  Sex: Male
  Weight: 90 kg

DRUGS (2)
  1. ENALAPRIL [Suspect]
     Active Substance: ENALAPRIL
     Indication: PRODUCT USED FOR UNKNOWN INDICATION
     Dosage: 1 G, (100 TABLETS)
     Route: 048
  2. VERAPAMIL [Suspect]
     Active Substance: VERAPAMIL HYDROCHLORIDE
     Indication: PRODUCT USED FOR UNKNOWN INDICATION
     Dosage: 12 G, (100 TABLETS)
     Route: 048

REACTIONS (10)
  - Atrioventricular block complete [Unknown]
  - Mental status changes [Unknown]
  - Hypotension [Unknown]
  - Hypoxia [Unknown]
  - Overdose [Unknown]
  - Hyperhidrosis [Unknown]
  - Respiratory failure [Unknown]
  - Tachypnoea [Unknown]
  - Suicide attempt [Unknown]
  - Anuria [Unknown]
